FAERS Safety Report 17751120 (Version 1)
Quarter: 2020Q2

REPORT INFORMATION
  Report Type: Spontaneous
  Country: US (occurrence: US)
  Receive Date: 20200506
  Receipt Date: 20200506
  Transmission Date: 20200714
  Serious: Yes (Hospitalization)
  Sender: FDA-Public Use
  Company Number: None

PATIENT
  Age: 69 Year
  Sex: Male

DRUGS (2)
  1. IBUPROFEN (IBUPROFEN 200 MG TAB) [Suspect]
     Active Substance: IBUPROFEN
     Route: 048
     Dates: start: 20200201, end: 20200501
  2. LISINOPRIL (LISINOPRIL MG TAB) [Suspect]
     Active Substance: LISINOPRIL
     Route: 048
     Dates: start: 20091009, end: 20200501

REACTIONS (3)
  - Hyperkalaemia [None]
  - Hypovolaemia [None]
  - Acute kidney injury [None]

NARRATIVE: CASE EVENT DATE: 20200501
